FAERS Safety Report 4337431-4 (Version None)
Quarter: 2004Q2

REPORT INFORMATION
  Report Type: 
  Country: None (occurrence: None)
  Receive Date: 20040407
  Receipt Date: 20040325
  Transmission Date: 20050107
  Serious: Yes (Hospitalization)
  Sender: FDA-Public Use
  Company Number: 2004020363

PATIENT
  Age: 60 Year
  Sex: Female

DRUGS (6)
  1. PHENYTOIN [Suspect]
     Indication: PROPHYLAXIS
  2. DEXAMETHASONE [Suspect]
     Indication: ILL-DEFINED DISORDER
  3. DILTIAZEM [Concomitant]
  4. SIMVASTATIN [Concomitant]
  5. FAMOTIDINE [Concomitant]
  6. MORPHINE [Concomitant]

REACTIONS (4)
  - CATHETER RELATED INFECTION [None]
  - HYPERGLYCAEMIA [None]
  - LINEAR IGA DISEASE [None]
  - TOXIC EPIDERMAL NECROLYSIS [None]
